FAERS Safety Report 23788563 (Version 1)
Quarter: 2024Q2

REPORT INFORMATION
  Report Type: Spontaneous
  Country: US (occurrence: US)
  Receive Date: 20240426
  Receipt Date: 20240426
  Transmission Date: 20240716
  Serious: Yes (Other)
  Sender: FDA-Public Use
  Company Number: US-JNJFOC-20240461857

PATIENT

DRUGS (13)
  1. REMICADE [Suspect]
     Active Substance: INFLIXIMAB
     Indication: Product used for unknown indication
     Route: 041
  2. STELARA [Suspect]
     Active Substance: USTEKINUMAB
     Indication: Product used for unknown indication
     Route: 058
  3. PREDNISONE [Suspect]
     Active Substance: PREDNISONE
     Indication: Product used for unknown indication
     Route: 065
  4. MERCAPTOPURINE [Suspect]
     Active Substance: MERCAPTOPURINE
     Indication: Product used for unknown indication
     Route: 065
  5. CIMZIA [Suspect]
     Active Substance: CERTOLIZUMAB PEGOL
     Indication: Product used for unknown indication
     Route: 065
  6. PENTASA [Concomitant]
     Active Substance: MESALAMINE
  7. ASACOL [Concomitant]
     Active Substance: MESALAMINE
  8. XELJANZ [Concomitant]
     Active Substance: TOFACITINIB CITRATE
  9. CIPRO [Concomitant]
     Active Substance: CIPROFLOXACIN HYDROCHLORIDE
  10. FLAGYL [Concomitant]
     Active Substance: METRONIDAZOLE\METRONIDAZOLE HYDROCHLORIDE
  11. METHOTREXATE [Concomitant]
     Active Substance: METHOTREXATE
  12. HUMIRA [Concomitant]
     Active Substance: ADALIMUMAB
  13. ENTYVIO [Concomitant]
     Active Substance: VEDOLIZUMAB

REACTIONS (8)
  - Anal abscess [Recovered/Resolved with Sequelae]
  - Pyrexia [Unknown]
  - Diarrhoea [Unknown]
  - Night sweats [Unknown]
  - Fatigue [Unknown]
  - Fistula [Unknown]
  - Haemorrhoids [Unknown]
  - Nausea [Unknown]
